FAERS Safety Report 6030521-X (Version None)
Quarter: 2009Q1

REPORT INFORMATION
  Report Type: 
  Country: None (occurrence: None)
  Receive Date: 20090106
  Receipt Date: 20090106
  Transmission Date: 20090719
  Serious: Yes (Hospitalization)
  Sender: FDA-Public Use
  Company Number: None

PATIENT
  Sex: Female
  Weight: 51.9 kg

DRUGS (6)
  1. CYTARABINE [Suspect]
     Dosage: 920 MG
  2. MERCAPTOPURINE [Suspect]
     Dosage: 1400 MG
  3. METHOTREXATE [Suspect]
     Dosage: 30 MG
  4. PEG-L ASPARAGINASE (K-H) [Suspect]
     Dosage: 3700 IU
  5. VINCRISTINE SULFATE [Suspect]
     Dosage: 2 MG
  6. CYCLOPHOSPHAMIDE [Suspect]
     Dosage: 1500 MG

REACTIONS (2)
  - DRUG DOSE OMISSION [None]
  - LEUKOENCEPHALOPATHY [None]
